FAERS Safety Report 14652698 (Version 2)
Quarter: 2019Q1

REPORT INFORMATION
  Report Type: Spontaneous
  Country: AT (occurrence: AT)
  Receive Date: 20180319
  Receipt Date: 20190108
  Transmission Date: 20190417
  Serious: Yes (Other)
  Sender: FDA-Public Use
  Company Number: AT-ABBVIE-18K-009-2291429-00

PATIENT

DRUGS (3)
  1. AZATHIOPRINE. [Suspect]
     Active Substance: AZATHIOPRINE
     Indication: ANKYLOSING SPONDYLITIS
     Route: 065
  2. ENTOCORT [Suspect]
     Active Substance: BUDESONIDE
     Indication: ANKYLOSING SPONDYLITIS
     Route: 064
  3. HUMIRA [Suspect]
     Active Substance: ADALIMUMAB
     Indication: ANKYLOSING SPONDYLITIS
     Route: 058

REACTIONS (7)
  - Crohn^s disease [Recovered/Resolved]
  - Haemorrhoids [Recovered/Resolved]
  - Product use in unapproved indication [Unknown]
  - Iridocyclitis [Not Recovered/Not Resolved]
  - Salmonellosis [Recovered/Resolved]
  - Oropharyngitis fungal [Not Recovered/Not Resolved]
  - Nasopharyngitis [Not Recovered/Not Resolved]

NARRATIVE: CASE EVENT DATE: 20120630
